FAERS Safety Report 6517303-7 (Version None)
Quarter: 2009Q4

REPORT INFORMATION
  Report Type: 
  Country: None (occurrence: None)
  Receive Date: 20091218
  Receipt Date: 20091209
  Transmission Date: 20100525
  Serious: Yes (Other)
  Sender: FDA-Public Use
  Company Number: A-US2009-29350

PATIENT
  Age: 37 Year
  Sex: Female

DRUGS (3)
  1. TRACLEER [Suspect]
     Indication: PULMONARY ARTERIAL HYPERTENSION
     Dosage: ORAL; 62.5 MG, BID, ORAL
     Route: 048
     Dates: start: 20080519, end: 20090101
  2. TRACLEER [Suspect]
     Indication: PULMONARY ARTERIAL HYPERTENSION
     Dosage: ORAL; 62.5 MG, BID, ORAL
     Route: 048
     Dates: start: 20090101, end: 20091101
  3. COUMADIN [Concomitant]

REACTIONS (1)
  - PREGNANCY TEST FALSE POSITIVE [None]
